FAERS Safety Report 12730209 (Version 1)
Quarter: 2016Q3

REPORT INFORMATION
  Report Type: Report from Study
  Country: JP (occurrence: JP)
  Receive Date: 20160909
  Receipt Date: 20160909
  Transmission Date: 20161109
  Serious: Yes (Death)
  Sender: FDA-Public Use
  Company Number: JP-PFIZER INC-2016420784

PATIENT

DRUGS (3)
  1. LEUCOVORIN. [Suspect]
     Active Substance: LEUCOVORIN
     Indication: COLORECTAL CANCER METASTATIC
     Dosage: 75 MG, DAILY (EVERY 8 HOURS, FOR 21 DAYS)
     Route: 048
  2. TEGAFUR URACIL [Suspect]
     Active Substance: TEGAFUR
     Indication: COLORECTAL CANCER METASTATIC
     Dosage: 300 MG/M2, CYCLIC (300 MG/M2/D)
  3. BEVACIZUMAB [Suspect]
     Active Substance: BEVACIZUMAB
     Indication: COLORECTAL CANCER METASTATIC
     Dosage: 5 MG/KG, CYCLIC (ON DAYS 1 AND 15)
     Route: 042

REACTIONS (1)
  - Sudden death [Fatal]
